FAERS Safety Report 7312388-2 (Version None)
Quarter: 2011Q1

REPORT INFORMATION
  Report Type: 
  Country: None (occurrence: None)
  Receive Date: 20110224
  Receipt Date: 20110214
  Transmission Date: 20110831
  Serious: Yes (Hospitalization)
  Sender: FDA-Public Use
  Company Number: HR-BAXTER-2011BH003665

PATIENT
  Age: 61 Year
  Sex: Male

DRUGS (2)
  1. EXTRANEAL [Suspect]
     Indication: PERITONEAL DIALYSIS
     Route: 033
     Dates: start: 20090519
  2. DIANEAL [Suspect]
     Indication: PERITONEAL DIALYSIS
     Route: 033
     Dates: start: 20090519

REACTIONS (3)
  - PERITONITIS BACTERIAL [None]
  - PYREXIA [None]
  - PERITONEAL DIALYSIS COMPLICATION [None]
